FAERS Safety Report 7588028-4 (Version None)
Quarter: 2011Q3

REPORT INFORMATION
  Report Type: 
  Country: None (occurrence: None)
  Receive Date: 20110705
  Receipt Date: 20110627
  Transmission Date: 20111222
  Serious: No
  Sender: FDA-Public Use
  Company Number: US-PFIZER INC-2011102015

PATIENT
  Sex: Female
  Weight: 83 kg

DRUGS (6)
  1. ASPIRIN [Concomitant]
     Dosage: 81 MG, 1X/DAY
  2. PREMARIN [Suspect]
     Indication: MENOPAUSE
     Dosage: 0.3 MG, 1X/DAY
     Route: 048
     Dates: start: 20101016, end: 20101215
  3. CLARITIN [Concomitant]
     Dosage: 10 MG, AS NEEDED
  4. RANITIDINE [Concomitant]
     Dosage: UNK
  5. IBUPROFEN [Concomitant]
     Dosage: UNK, AS NEEDED
  6. NASACORT [Concomitant]
     Dosage: UNK, AS NEEDED

REACTIONS (12)
  - ANORECTAL DISCOMFORT [None]
  - SWELLING [None]
  - POOR QUALITY DRUG ADMINISTERED [None]
  - ORAL DISCOMFORT [None]
  - NASAL DISCOMFORT [None]
  - BURNING SENSATION [None]
  - GLOSSODYNIA [None]
  - OESOPHAGEAL PAIN [None]
  - NAUSEA [None]
  - APPETITE DISORDER [None]
  - DYSPEPSIA [None]
  - THROAT IRRITATION [None]
